FAERS Safety Report 15482140 (Version 2)
Quarter: 2018Q4

REPORT INFORMATION
  Report Type: Spontaneous
  Country: US (occurrence: US)
  Receive Date: 20181010
  Receipt Date: 20181016
  Transmission Date: 20190205
  Serious: Yes (Other)
  Sender: FDA-Public Use
  Company Number: US-AMGEN-USASP2018138802

PATIENT
  Sex: Female

DRUGS (3)
  1. FASLODEX [Concomitant]
     Active Substance: FULVESTRANT
  2. XGEVA [Suspect]
     Active Substance: DENOSUMAB
     Indication: PRODUCT USED FOR UNKNOWN INDICATION
     Dosage: UNK
     Route: 065
  3. IBRANCE [Suspect]
     Active Substance: PALBOCICLIB
     Indication: BREAST CANCER
     Dosage: 100 MG, QD
     Route: 048
     Dates: start: 20180716

REACTIONS (7)
  - Osteonecrosis of jaw [Unknown]
  - Blood potassium abnormal [Unknown]
  - Fatigue [Recovering/Resolving]
  - Back pain [Unknown]
  - Stomatitis [Unknown]
  - Weight fluctuation [Unknown]
  - Tooth extraction [Unknown]

NARRATIVE: CASE EVENT DATE: 201807
